FAERS Safety Report 9403269 (Version 2)
Quarter: 2013Q3

REPORT INFORMATION
  Report Type: Spontaneous
  Country: JP (occurrence: JP)
  Receive Date: 20130712
  Receipt Date: 20130816
  Transmission Date: 20140515
  Serious: Yes (Hospitalization)
  Sender: FDA-Public Use
  Company Number: TCI2013A03334

PATIENT
  Age: 64 Year
  Sex: Male

DRUGS (6)
  1. NESINA TABLETS 25 MG (ALOGLIPTIN BENZOATE) [Suspect]
     Indication: BLOOD GLUCOSE ABNORMAL
     Route: 048
     Dates: start: 20130607, end: 20130610
  2. PLAVIX [Suspect]
     Indication: ANGINA PECTORIS
     Route: 048
     Dates: start: 20130603, end: 20130620
  3. LIPITOR (ATORVASTATIN CALCIUM) [Concomitant]
     Indication: CATHETERISATION CARDIAC
  4. NU-LOTAN (LOSARTAN POTASSIUM) [Concomitant]
  5. BAYASPIRIN (ACETYLSALICYLIC ACID) (ACETYLSALICYLIC ACID) [Concomitant]
  6. CONTRAST MEDIA [Suspect]
     Indication: CATHETERISATION CARDIAC
     Dosage: 60ML,1D, IV, ON 03-JUN-2013

REACTIONS (3)
  - Rash generalised [None]
  - Generalised oedema [None]
  - Eyelid oedema [None]
